FAERS Safety Report 19933954 (Version 1)
Quarter: 2021Q4

REPORT INFORMATION
  Report Type: Spontaneous
  Country: FR (occurrence: FR)
  Receive Date: 20211008
  Receipt Date: 20211008
  Transmission Date: 20220303
  Serious: Yes (Hospitalization)
  Sender: FDA-Public Use
  Company Number: None

PATIENT
  Age: 64 Year
  Sex: Male
  Weight: 70 kg

DRUGS (6)
  1. DULOXETINE HYDROCHLORIDE [Suspect]
     Active Substance: DULOXETINE HYDROCHLORIDE
     Indication: Pain
     Dosage: 120 MG, DAILY
     Route: 048
     Dates: start: 202008
  2. OCREVUS [Suspect]
     Active Substance: OCRELIZUMAB
     Indication: Multiple sclerosis
     Dosage: 300 MG, CYCLICAL
     Route: 042
     Dates: start: 202008, end: 20210627
  3. TRILEPTAL [Suspect]
     Active Substance: OXCARBAZEPINE
     Indication: Epilepsy
     Dosage: 600 MG, DAILY
     Route: 048
     Dates: start: 202008
  4. PREGABALIN [Suspect]
     Active Substance: PREGABALIN
     Indication: Pain
     Dosage: 150 MG, DAILY
     Route: 048
     Dates: start: 202008
  5. KETOCONAZOLE [Suspect]
     Active Substance: KETOCONAZOLE
     Indication: Urinary incontinence
     Dosage: 2 DOSAGE FORM, WEEKLY (1/W)
     Route: 003
     Dates: start: 202104
  6. ALFUZOSIN [Suspect]
     Active Substance: ALFUZOSIN
     Indication: Urinary incontinence
     Dosage: 10 MG, DAILY
     Route: 048
     Dates: start: 202008

REACTIONS (2)
  - Eczema [Not Recovered/Not Resolved]
  - Eosinophilia [Not Recovered/Not Resolved]

NARRATIVE: CASE EVENT DATE: 20210520
